FAERS Safety Report 25892254 (Version 1)
Quarter: 2025Q4

REPORT INFORMATION
  Report Type: Spontaneous
  Country: EU (occurrence: EU)
  Receive Date: 20251007
  Receipt Date: 20251007
  Transmission Date: 20260117
  Serious: Yes (Other)
  Sender: Methapharma
  Company Number: EU-CHEMISCHE FABRIK KREUSSLER-ae001PT25

PATIENT
  Age: 82 Year
  Sex: Female

DRUGS (1)
  1. ASCLERA [Suspect]
     Active Substance: POLIDOCANOL
     Indication: Sclerotherapy

REACTIONS (2)
  - Angiodermatitis [Unknown]
  - Injection site mass [Unknown]
